FAERS Safety Report 16566340 (Version 1)
Quarter: 2019Q3

REPORT INFORMATION
  Report Type: Spontaneous
  Country: DE (occurrence: DE)
  Receive Date: 20190712
  Receipt Date: 20190712
  Transmission Date: 20191004
  Serious: Yes (Hospitalization)
  Sender: FDA-Public Use
  Company Number: DE-AMREGENT-20191444

PATIENT
  Age: 87 Year
  Sex: Female

DRUGS (3)
  1. VENOFER [Suspect]
     Active Substance: IRON SUCROSE
     Dosage: UNKNOWN
     Route: 042
  2. GABAPENTIN HEXAL [Suspect]
     Active Substance: GABAPENTIN
     Dosage: 3 ABSORBANCE,3 IN 1 D
     Route: 065
  3. FERINJECT [Suspect]
     Active Substance: FERRIC CARBOXYMALTOSE
     Dosage: UNKNOWN
     Route: 042

REACTIONS (3)
  - Product use in unapproved indication [Unknown]
  - Pneumonia [Unknown]
  - Tremor [Unknown]

NARRATIVE: CASE EVENT DATE: 201906
